FAERS Safety Report 4511056-X (Version None)
Quarter: 2004Q4

REPORT INFORMATION
  Report Type: 
  Country: None (occurrence: None)
  Receive Date: 20041018
  Receipt Date: 20040818
  Transmission Date: 20050328
  Serious: No
  Sender: FDA-Public Use
  Company Number: 208545

PATIENT
  Age: 58 Year
  Sex: Female
  Weight: 109.8 kg

DRUGS (10)
  1. XOLAIR [Suspect]
     Indication: ASTHMA
     Dosage: 300 MG, Q4W, SUBCUTANEOUS
     Route: 058
     Dates: start: 20040625
  2. XOLAIR [Suspect]
  3. XOLAIR [Suspect]
  4. DYAZIDE [Concomitant]
  5. CARDIZEM [Concomitant]
  6. ZEBETA [Concomitant]
  7. SINGULAIR [Concomitant]
  8. ALBUTEROL (ALBUTEROL, ALBUTEROL SULFATE) [Concomitant]
  9. ADVAIR (SALMETEROL XINAFOATE, FLUTICASONE PROPIONATE) [Concomitant]
  10. PREVACID [Concomitant]

REACTIONS (2)
  - DIARRHOEA [None]
  - INFLUENZA LIKE ILLNESS [None]
